FAERS Safety Report 8429248-6 (Version None)
Quarter: 2012Q2

REPORT INFORMATION
  Report Type: 
  Country: None (occurrence: None)
  Receive Date: 20120612
  Receipt Date: 20120607
  Transmission Date: 20120825
  Serious: Yes (Hospitalization, Other)
  Sender: FDA-Public Use
  Company Number: PHHY2012CA014281

PATIENT
  Sex: Female

DRUGS (5)
  1. VITAMIN D [Concomitant]
  2. SANDOSTATIN LAR [Suspect]
     Indication: ACROMEGALY
     Dosage: 30 MG, QMO
     Route: 030
     Dates: start: 20100804
  3. TAPAZOLE [Concomitant]
  4. COUMADIN [Concomitant]
  5. IRON [Concomitant]

REACTIONS (4)
  - HYPOAESTHESIA [None]
  - HAEMORRHAGE [None]
  - DYSSTASIA [None]
  - EMBOLIC STROKE [None]
